FAERS Safety Report 16237683 (Version 1)
Quarter: 2019Q2

REPORT INFORMATION
  Report Type: Spontaneous
  Country: US (occurrence: US)
  Receive Date: 20190425
  Receipt Date: 20190425
  Transmission Date: 20190711
  Serious: No
  Sender: FDA-Public Use
  Company Number: US-JNJFOC-20190343713

PATIENT
  Age: 3 Decade
  Sex: Female
  Weight: 49.9 kg

DRUGS (2)
  1. MENS ROGAINE EXTRA STRENGTH UNSCENTED [Suspect]
     Active Substance: MINOXIDIL
     Route: 061
  2. MENS ROGAINE EXTRA STRENGTH UNSCENTED [Suspect]
     Active Substance: MINOXIDIL
     Indication: ALOPECIA
     Dosage: HALF A CAP TO LESS THAN HALF A CAP
     Route: 061

REACTIONS (3)
  - Product use issue [Unknown]
  - Off label use [Unknown]
  - Nodule [Not Recovered/Not Resolved]
